FAERS Safety Report 8515851-1 (Version None)
Quarter: 2012Q3

REPORT INFORMATION
  Report Type: 
  Country: None (occurrence: None)
  Receive Date: 20120717
  Receipt Date: 20120712
  Transmission Date: 20120928
  Serious: Yes (Hospitalization)
  Sender: FDA-Public Use
  Company Number: DE-TEVA-348532USA

PATIENT
  Sex: Male

DRUGS (2)
  1. RITUXAN [Concomitant]
     Dates: start: 20120702, end: 20120702
  2. TREANDA [Suspect]
     Dosage: UID/QD
     Route: 042
     Dates: start: 20120702, end: 20120703

REACTIONS (1)
  - SYSTEMIC INFLAMMATORY RESPONSE SYNDROME [None]
